FAERS Safety Report 25619372 (Version 1)
Quarter: 2025Q3

REPORT INFORMATION
  Report Type: Spontaneous
  Country: EU (occurrence: EU)
  Receive Date: 20250729
  Receipt Date: 20250729
  Transmission Date: 20251021
  Serious: Yes (Death)
  Sender: MYLAN
  Company Number: EU-DCGMA-25205541

PATIENT
  Age: 76 Year
  Sex: Male
  Weight: 99 kg

DRUGS (16)
  1. AMIODARONE [Suspect]
     Active Substance: AMIODARONE
     Indication: Atrial fibrillation
     Dosage: 400 MILLIGRAM, BID (800 MILLIGRAM, QD)
     Route: 048
     Dates: start: 20250115, end: 20250115
  2. AMIODARONE [Suspect]
     Active Substance: AMIODARONE
     Dosage: 400 MILLIGRAM, BID (800 MILLIGRAM, QD)
     Dates: start: 20250115, end: 20250115
  3. AMIODARONE [Suspect]
     Active Substance: AMIODARONE
     Dosage: 400 MILLIGRAM, BID (800 MILLIGRAM, QD)
     Dates: start: 20250115, end: 20250115
  4. AMIODARONE [Suspect]
     Active Substance: AMIODARONE
     Dosage: 400 MILLIGRAM, BID (800 MILLIGRAM, QD)
     Route: 048
     Dates: start: 20250115, end: 20250115
  5. AMIODARONE [Suspect]
     Active Substance: AMIODARONE
     Dosage: 400 MILLIGRAM, TID (1200 MILLIGRAM, QD)
     Route: 048
     Dates: start: 20250116, end: 20250119
  6. AMIODARONE [Suspect]
     Active Substance: AMIODARONE
     Dosage: 400 MILLIGRAM, TID (1200 MILLIGRAM, QD)
     Dates: start: 20250116, end: 20250119
  7. AMIODARONE [Suspect]
     Active Substance: AMIODARONE
     Dosage: 400 MILLIGRAM, TID (1200 MILLIGRAM, QD)
     Dates: start: 20250116, end: 20250119
  8. AMIODARONE [Suspect]
     Active Substance: AMIODARONE
     Dosage: 400 MILLIGRAM, TID (1200 MILLIGRAM, QD)
     Route: 048
     Dates: start: 20250116, end: 20250119
  9. AMIODARONE [Suspect]
     Active Substance: AMIODARONE
     Dates: start: 20250120, end: 20250120
  10. AMIODARONE [Suspect]
     Active Substance: AMIODARONE
     Dates: start: 20250120, end: 20250120
  11. AMIODARONE [Suspect]
     Active Substance: AMIODARONE
     Route: 048
     Dates: start: 20250120, end: 20250120
  12. AMIODARONE [Suspect]
     Active Substance: AMIODARONE
     Route: 048
     Dates: start: 20250120, end: 20250120
  13. AMIODARONE [Suspect]
     Active Substance: AMIODARONE
     Dates: start: 20250121, end: 20250508
  14. AMIODARONE [Suspect]
     Active Substance: AMIODARONE
     Dates: start: 20250121, end: 20250508
  15. AMIODARONE [Suspect]
     Active Substance: AMIODARONE
     Route: 048
     Dates: start: 20250121, end: 20250508
  16. AMIODARONE [Suspect]
     Active Substance: AMIODARONE
     Route: 048
     Dates: start: 20250121, end: 20250508

REACTIONS (1)
  - Pneumonitis [Fatal]

NARRATIVE: CASE EVENT DATE: 20250507
